FAERS Safety Report 8360345-X (Version None)
Quarter: 2012Q1

REPORT INFORMATION
  Report Type: 
  Country: None (occurrence: None)
  Receive Date: 20120323
  Receipt Date: 20111010
  Transmission Date: 20120608
  Serious: Yes (Other)
  Sender: FDA-Public Use
  Company Number: 163-21880-11090816

PATIENT
  Age: 79 Year
  Sex: Female
  Weight: 68 kg

DRUGS (8)
  1. CALCIUM CARBONATE [Concomitant]
  2. REVLIMID [Suspect]
     Indication: MULTIPLE MYELOMA
     Dosage: 25 MG, DAILY, PO
     Route: 048
     Dates: start: 20110801
  3. FLONASE [Concomitant]
  4. ZOMETA [Concomitant]
  5. LISINOPRIL [Concomitant]
  6. ASPIRIN [Concomitant]
  7. AMLODIPINE [Concomitant]
  8. MULTIPLE VITAMIN (VITAMINS NOS) [Concomitant]

REACTIONS (6)
  - SOMNOLENCE [None]
  - WEIGHT DECREASED [None]
  - ASTHENIA [None]
  - RED BLOOD CELL COUNT DECREASED [None]
  - DECREASED APPETITE [None]
  - BACK PAIN [None]
